FAERS Safety Report 8462694-3 (Version None)
Quarter: 2012Q2

REPORT INFORMATION
  Report Type: 
  Country: None (occurrence: None)
  Receive Date: 20120619
  Receipt Date: 20120619
  Transmission Date: 20120825
  Serious: Yes (Life-Threatening)
  Sender: FDA-Public Use
  Company Number: None

PATIENT
  Age: 84 Year
  Sex: Female
  Weight: 54.4316 kg

DRUGS (2)
  1. HALDOL [Suspect]
     Indication: PATIENT RESTRAINT
     Dosage: 2MG TWICE IV
     Route: 042
     Dates: start: 20110726, end: 20110726
  2. HALDOL [Suspect]
     Indication: PRODUCT USED FOR UNKNOWN INDICATION
     Dosage: 2MG TWICE IV
     Route: 042
     Dates: start: 20110726, end: 20110726

REACTIONS (5)
  - EXTRAPYRAMIDAL DISORDER [None]
  - CHEST PAIN [None]
  - ABASIA [None]
  - TREMOR [None]
  - ACTIVITIES OF DAILY LIVING IMPAIRED [None]
